FAERS Safety Report 10530394 (Version 3)
Quarter: 2014Q4

REPORT INFORMATION
  Report Type: Report from Study
  Country: US (occurrence: US)
  Receive Date: 20141021
  Receipt Date: 20141106
  Transmission Date: 20150528
  Serious: Yes (Death, Hospitalization, Other)
  Sender: FDA-Public Use
  Company Number: US-ALEXION PHARMACEUTICALS INC.-A201403973

PATIENT

DRUGS (1)
  1. SOLIRIS [Suspect]
     Active Substance: ECULIZUMAB
     Indication: PRODUCT USED FOR UNKNOWN INDICATION
     Route: 042

REACTIONS (6)
  - Anuria [Unknown]
  - Blood bilirubin decreased [Unknown]
  - Death [Fatal]
  - Unevaluable event [Unknown]
  - Jaundice [Unknown]
  - Renal impairment [Unknown]

NARRATIVE: CASE EVENT DATE: 20141013
